FAERS Safety Report 15408534 (Version 2)
Quarter: 2018Q3

REPORT INFORMATION
  Report Type: Spontaneous
  Country: US (occurrence: US)
  Receive Date: 20180920
  Receipt Date: 20180926
  Transmission Date: 20181010
  Serious: Yes (Other)
  Sender: FDA-Public Use
  Company Number: US-ALLERGAN-1844820US

PATIENT
  Age: 88 Year
  Sex: Male
  Weight: 68.27 kg

DRUGS (2)
  1. REFRESH TEARS [Suspect]
     Active Substance: CARBOXYMETHYLCELLULOSE SODIUM
     Indication: DRY EYE
     Dosage: 2 GTT, 3?4 TIMES A DAY
     Route: 047
     Dates: start: 1988
  2. ASPIRIN. [Concomitant]
     Active Substance: ASPIRIN
     Indication: CEREBROVASCULAR ACCIDENT PROPHYLAXIS
     Dosage: 81 MG, QD

REACTIONS (7)
  - Medication residue present [Recovered/Resolved]
  - Visual impairment [Not Recovered/Not Resolved]
  - Prostate cancer [Not Recovered/Not Resolved]
  - Carotid artery occlusion [Recovered/Resolved]
  - Blood cholesterol increased [Not Recovered/Not Resolved]
  - Eye irritation [Unknown]
  - Product dropper issue [Unknown]

NARRATIVE: CASE EVENT DATE: 1998
